FAERS Safety Report 19348812 (Version 1)
Quarter: 2021Q2

REPORT INFORMATION
  Report Type: Spontaneous
  Country: US (occurrence: US)
  Receive Date: 20210531
  Receipt Date: 20210531
  Transmission Date: 20210717
  Serious: Yes (Other)
  Sender: FDA-Public Use
  Company Number: US-PURDUE-USA-2020-0162600

PATIENT
  Sex: Male

DRUGS (8)
  1. OXYFAST [Suspect]
     Active Substance: OXYCODONE
     Indication: INJURY
     Route: 065
  2. BUTRANS [Suspect]
     Active Substance: BUPRENORPHINE
     Indication: INJURY
     Route: 062
  3. OXYIR [Suspect]
     Active Substance: OXYCODONE HYDROCHLORIDE
     Indication: INJURY
     Route: 065
  4. MS CONTIN [Suspect]
     Active Substance: MORPHINE SULFATE
     Indication: INJURY
     Route: 048
  5. OXYCODONE HCL TABLETS (RHODES 91?490) [Suspect]
     Active Substance: OXYCODONE HYDROCHLORIDE
     Indication: INJURY
     Route: 048
  6. PERCOCET                           /00446701/ [Suspect]
     Active Substance: ACETAMINOPHEN\OXYCODONE HYDROCHLORIDE\OXYCODONE TEREPHTHALATE
     Indication: INJURY
     Route: 065
  7. DILAUDID [Suspect]
     Active Substance: HYDROMORPHONE HYDROCHLORIDE
     Indication: INJURY
     Route: 048
  8. OXYCONTIN [Suspect]
     Active Substance: OXYCODONE HYDROCHLORIDE
     Indication: INJURY
     Route: 048

REACTIONS (16)
  - Vomiting [Unknown]
  - Abdominal pain upper [Unknown]
  - Pyrexia [Unknown]
  - Heart rate increased [Unknown]
  - Hyperhidrosis [Unknown]
  - Drug dependence [Unknown]
  - Illness [Unknown]
  - Depression [Unknown]
  - Insomnia [Unknown]
  - Pancreatic disorder [Unknown]
  - Diarrhoea [Unknown]
  - Dyspnoea [Unknown]
  - Anxiety [Unknown]
  - Chills [Unknown]
  - Libido disorder [Unknown]
  - Drug withdrawal syndrome [Unknown]
